FAERS Safety Report 18054083 (Version 2)
Quarter: 2020Q3

REPORT INFORMATION
  Report Type: Spontaneous
  Country: AU (occurrence: AU)
  Receive Date: 20200722
  Receipt Date: 20200724
  Transmission Date: 20201103
  Serious: Yes (Other)
  Sender: FDA-Public Use
  Company Number: NVSC2020AU204412

PATIENT

DRUGS (1)
  1. MYCOPHENOLIC ACID. [Suspect]
     Active Substance: MYCOPHENOLIC ACID
     Indication: FOETAL EXPOSURE DURING PREGNANCY
     Dosage: UNK(FETAL DRUG EXPOSURE VIA FATHER)
     Route: 050

REACTIONS (3)
  - Foetal disorder [Unknown]
  - Foetal exposure during pregnancy [Unknown]
  - Paternal exposure timing unspecified [Unknown]
